FAERS Safety Report 26005791 (Version 1)
Quarter: 2025Q4

REPORT INFORMATION
  Report Type: Spontaneous
  Country: US (occurrence: None)
  Receive Date: 20251105
  Receipt Date: 20251105
  Transmission Date: 20260117
  Serious: Yes (Hospitalization)
  Sender: FDA-CTU
  Company Number: None

PATIENT
  Age: 63 Year
  Sex: Male

DRUGS (12)
  1. TACROLIMUS [Suspect]
     Active Substance: TACROLIMUS
     Indication: Heart transplant
     Dosage: FREQUENCY : EVERY OTHER WEEK;?
     Route: 048
     Dates: start: 20250909
  2. MYCOPHENOLATE MOFETIL [Suspect]
     Active Substance: MYCOPHENOLATE MOFETIL
     Indication: Heart transplant
     Dosage: 1000  MG BID ORAL ?
     Route: 048
     Dates: start: 20250909
  3. ALLOPURINOL [Concomitant]
     Active Substance: ALLOPURINOL
  4. SAXAGLIPTIN [Concomitant]
     Active Substance: SAXAGLIPTIN
  5. PROGRAF [Concomitant]
     Active Substance: TACROLIMUS
  6. ELIQUIS [Concomitant]
     Active Substance: APIXABAN
  7. PANTOPRAZOLE [Concomitant]
     Active Substance: PANTOPRAZOLE
  8. TORSEMIDE [Concomitant]
     Active Substance: TORSEMIDE
  9. POTASSIUM CHLORIDE [Concomitant]
     Active Substance: POTASSIUM CHLORIDE
  10. JARDIANCE [Concomitant]
     Active Substance: EMPAGLIFLOZIN
  11. ASPIRIN 81 EC LOW [Concomitant]
  12. AMLODIPINE BESYLATE [Concomitant]
     Active Substance: AMLODIPINE BESYLATE

REACTIONS (2)
  - Infection [None]
  - White blood cell count decreased [None]

NARRATIVE: CASE EVENT DATE: 20251024
